FAERS Safety Report 11857894 (Version 3)
Quarter: 2016Q1

REPORT INFORMATION
  Report Type: Report from Study
  Country: US (occurrence: US)
  Receive Date: 20151222
  Receipt Date: 20160218
  Transmission Date: 20160526
  Serious: Yes (Hospitalization, Other)
  Sender: FDA-Public Use
  Company Number: US-BAYER-2015-450307

PATIENT
  Age: 66 Year
  Sex: Male

DRUGS (2)
  1. NEXAVAR [Suspect]
     Active Substance: SORAFENIB
     Indication: RENAL CELL CARCINOMA
     Dosage: 400 MG, BID
     Route: 048
     Dates: start: 20160118, end: 20160208
  2. NEXAVAR [Suspect]
     Active Substance: SORAFENIB
     Indication: RENAL CELL CARCINOMA
     Dosage: 400 MG, BID
     Route: 048
     Dates: start: 20151020, end: 20151210

REACTIONS (24)
  - Dysphonia [None]
  - Blood urea increased [None]
  - Fluid overload [None]
  - Constipation [None]
  - Blood pressure fluctuation [None]
  - Fatigue [None]
  - Laboratory test abnormal [None]
  - Blood pressure decreased [None]
  - Renal impairment [None]
  - Pain in extremity [None]
  - Decreased appetite [None]
  - Blood pressure increased [Recovering/Resolving]
  - Dyspnoea [None]
  - Blood creatinine increased [None]
  - Arthralgia [None]
  - Nausea [None]
  - Weight decreased [None]
  - Dehydration [None]
  - Diarrhoea [None]
  - Tooth abscess [None]
  - Diarrhoea [Recovered/Resolved]
  - Hypophagia [None]
  - Weight decreased [None]
  - Impaired healing [None]

NARRATIVE: CASE EVENT DATE: 2015
